FAERS Safety Report 7091397-5 (Version None)
Quarter: 2010Q4

REPORT INFORMATION
  Report Type: 
  Country: None (occurrence: None)
  Receive Date: 20101109
  Receipt Date: 20101103
  Transmission Date: 20110411
  Serious: Yes (Death)
  Sender: FDA-Public Use
  Company Number: A0891276A

PATIENT
  Sex: Female

DRUGS (3)
  1. SERETIDE [Suspect]
     Route: 055
  2. SINGULAIR [Concomitant]
  3. PREDNISONE [Concomitant]

REACTIONS (1)
  - CARDIAC ARREST [None]
